FAERS Safety Report 18829881 (Version 1)
Quarter: 2021Q1

REPORT INFORMATION
  Report Type: Spontaneous
  Country: US (occurrence: US)
  Receive Date: 20210201
  Receipt Date: 20210201
  Transmission Date: 20210419
  Serious: No
  Sender: FDA-Public Use
  Company Number: US-ABBVIE-20K-163-3619450-00

PATIENT
  Age: 31 Year
  Sex: Female

DRUGS (1)
  1. HUMIRA [Suspect]
     Active Substance: ADALIMUMAB
     Indication: ANKYLOSING SPONDYLITIS
     Route: 058

REACTIONS (8)
  - Pharyngitis streptococcal [Not Recovered/Not Resolved]
  - Stress [Unknown]
  - Urinary tract infection [Unknown]
  - Tonsillar inflammation [Not Recovered/Not Resolved]
  - Anxiety [Unknown]
  - Therapeutic product effect incomplete [Unknown]
  - Kidney infection [Unknown]
  - Infection [Unknown]

NARRATIVE: CASE EVENT DATE: 2020
